FAERS Safety Report 11776205 (Version 6)
Quarter: 2016Q1

REPORT INFORMATION
  Report Type: Spontaneous
  Country: JP (occurrence: JP)
  Receive Date: 20151125
  Receipt Date: 20160311
  Transmission Date: 20160525
  Serious: Yes (Death, Life-Threatening, Hospitalization)
  Sender: FDA-Public Use
  Company Number: JP-009507513-1511JPN011970

PATIENT
  Age: 59 Year
  Sex: Male

DRUGS (54)
  1. PREDNISOLONE. [Suspect]
     Active Substance: PREDNISOLONE
     Dosage: 45 MG, QD
     Route: 048
     Dates: start: 20140415, end: 20140428
  2. PREDNISOLONE. [Suspect]
     Active Substance: PREDNISOLONE
     Dosage: 40 MG, QD
     Route: 048
     Dates: start: 20140429, end: 20140513
  3. TAKEPRON [Concomitant]
     Active Substance: LANSOPRAZOLE
     Dosage: 15 MG, QD
     Route: 048
     Dates: end: 20140317
  4. SAMTIREL [Concomitant]
     Active Substance: ATOVAQUONE
     Dosage: 2 DF, QD
     Route: 048
     Dates: start: 20140402, end: 20140520
  5. ACTOS [Concomitant]
     Active Substance: PIOGLITAZONE HYDROCHLORIDE
     Dosage: 30 MG, QD
     Route: 048
     Dates: start: 20140411, end: 20140514
  6. FLUITRAN [Concomitant]
     Active Substance: TRICHLORMETHIAZIDE
     Dosage: 2 MG, QD
     Route: 048
     Dates: start: 20140604, end: 20140622
  7. LIVACT [Concomitant]
     Active Substance: AMINO ACIDS
     Dosage: 3 DF, QD
     Route: 048
     Dates: start: 20140423, end: 20140708
  8. NEXIUM [Concomitant]
     Active Substance: ESOMEPRAZOLE MAGNESIUM
     Dosage: 20 MG, QD
     Route: 048
     Dates: start: 20140611, end: 20140709
  9. PREDNISOLONE. [Suspect]
     Active Substance: PREDNISOLONE
     Dosage: 35 MG, QD
     Route: 048
     Dates: start: 20140514, end: 20140528
  10. PREDNISOLONE. [Suspect]
     Active Substance: PREDNISOLONE
     Dosage: 30 MG, QD
     Route: 048
     Dates: start: 20140529, end: 20140604
  11. SOLU-MEDROL [Suspect]
     Active Substance: METHYLPREDNISOLONE SODIUM SUCCINATE
     Indication: INTERSTITIAL LUNG DISEASE
     Dosage: 1000 MG, QD
     Route: 041
     Dates: start: 20140223
  12. MEDICON (DEXTROMETHORPHAN HYDROBROMIDE) [Concomitant]
     Active Substance: DEXTROMETHORPHAN HYDROBROMIDE
     Dosage: 45 MG, QD
     Route: 048
     Dates: end: 20140317
  13. GASTER [Concomitant]
     Active Substance: FAMOTIDINE
     Dosage: 40 MG, QD
     Route: 048
     Dates: start: 20140406, end: 20140520
  14. NESINA [Concomitant]
     Active Substance: ALOGLIPTIN BENZOATE
     Dosage: 25 MG, QD
     Route: 048
     Dates: start: 20140401, end: 20140407
  15. NESINA [Concomitant]
     Active Substance: ALOGLIPTIN BENZOATE
     Dosage: 25 MG, QD
     Route: 048
     Dates: start: 20140411, end: 20140417
  16. GASCON (DIMETHICONE) [Concomitant]
     Active Substance: DIMETHICONE
     Dosage: 240 MG, QD
     Route: 048
     Dates: start: 20140421, end: 20140422
  17. PREDNISOLONE. [Suspect]
     Active Substance: PREDNISOLONE
     Dosage: 50 MG, QD
     Route: 048
     Dates: start: 20140401, end: 20140414
  18. PARIET [Concomitant]
     Active Substance: RABEPRAZOLE SODIUM
     Dosage: 1 MG, QD
     Route: 048
     Dates: start: 20140318, end: 20140325
  19. ASVERIN (TIPEPIDINE HIBENZATE) [Concomitant]
     Active Substance: TIPEPIDINE HIBENZATE
     Dosage: 60 MG, QD
     Route: 048
     Dates: start: 20140318, end: 20140329
  20. LASIX [Concomitant]
     Active Substance: FUROSEMIDE
     Dosage: 20 MG, QD
     Route: 048
     Dates: start: 20140430, end: 20140701
  21. PREDNISOLONE. [Suspect]
     Active Substance: PREDNISOLONE
     Dosage: 55 MG, QD
     Route: 048
     Dates: start: 20140318, end: 20140331
  22. PREDNISOLONE. [Suspect]
     Active Substance: PREDNISOLONE
     Dosage: 15 MG, QD
     Route: 048
     Dates: start: 20140703
  23. LAC-B [Concomitant]
     Active Substance: BIFIDOBACTERIUM SPP.
     Dosage: 3 DF, QD
     Route: 048
     Dates: start: 20140318, end: 20140329
  24. GASTER [Concomitant]
     Active Substance: FAMOTIDINE
     Dosage: 80 MG, QD
     Route: 048
     Dates: start: 20140404, end: 20140405
  25. ACTOS [Concomitant]
     Active Substance: PIOGLITAZONE HYDROCHLORIDE
     Dosage: 30 MG, QD
     Route: 048
     Dates: start: 20140401, end: 20140407
  26. ACTOS [Concomitant]
     Active Substance: PIOGLITAZONE HYDROCHLORIDE
     Dosage: 60 MG, QD
     Route: 048
     Dates: start: 20140408, end: 20140409
  27. ALDACTONE A [Concomitant]
     Active Substance: SPIRONOLACTONE
     Dosage: 50 MG, QD
     Route: 048
     Dates: start: 20140423, end: 20140527
  28. GASMOTIN [Concomitant]
     Active Substance: MOSAPRIDE CITRATE
     Dosage: 15 MG, QD
     Route: 048
     Dates: start: 20140421, end: 20140422
  29. LASIX [Concomitant]
     Active Substance: FUROSEMIDE
     Dosage: 40 MG, QD
     Route: 048
     Dates: start: 20140702, end: 20140708
  30. TRAZENTA [Concomitant]
     Active Substance: LINAGLIPTIN
     Dosage: 5 MG, QD
     Route: 048
     Dates: start: 20140418, end: 20140514
  31. PREDNISOLONE. [Suspect]
     Active Substance: PREDNISOLONE
     Dosage: 20 MG, QD
     Route: 048
     Dates: start: 20140619, end: 20140702
  32. AMARYL [Concomitant]
     Active Substance: GLIMEPIRIDE
     Dosage: 6 MG, QD
     Route: 048
     Dates: end: 20140326
  33. ROZEREM [Concomitant]
     Active Substance: RAMELTEON
     Dosage: 16 MG, QD
     Route: 048
     Dates: end: 20140314
  34. ROZEREM [Concomitant]
     Active Substance: RAMELTEON
     Dosage: 8 MG, QD
     Route: 048
     Dates: start: 20140315, end: 20140316
  35. PREDNISOLONE. [Suspect]
     Active Substance: PREDNISOLONE
     Dosage: 25 MG, QD
     Route: 048
     Dates: start: 20140605, end: 20140618
  36. NESINA [Concomitant]
     Active Substance: ALOGLIPTIN BENZOATE
     Dosage: 50 MG, QD
     Route: 048
     Dates: start: 20140408, end: 20140409
  37. TRAMCET [Concomitant]
     Active Substance: ACETAMINOPHEN\TRAMADOL
     Dosage: 3 DF, QD
     Route: 048
     Dates: start: 20140513, end: 20140519
  38. PREDNISOLONE. [Suspect]
     Active Substance: PREDNISOLONE
     Indication: INTERSTITIAL LUNG DISEASE
     Dosage: 60 MG, QD
     Route: 048
     Dates: start: 20140305, end: 20140317
  39. MUCOSOLVAN L [Concomitant]
     Active Substance: AMBROXOL HYDROCHLORIDE
     Dosage: 45 MG, QD
     Route: 048
     Dates: start: 20140314, end: 20140314
  40. MUCODYNE [Concomitant]
     Active Substance: CARBOCYSTEINE
     Dosage: 750 MG, QD
     Route: 048
     Dates: start: 20140318, end: 20140405
  41. REMERON [Concomitant]
     Active Substance: MIRTAZAPINE
     Dosage: 30 MG, QD
     Route: 048
     Dates: end: 20140314
  42. REMERON [Concomitant]
     Active Substance: MIRTAZAPINE
     Dosage: 15 MG, QD
     Route: 048
     Dates: start: 20140315, end: 20140316
  43. GASTER [Concomitant]
     Active Substance: FAMOTIDINE
     Dosage: 40 MG, QD
     Route: 048
     Dates: start: 20140328, end: 20140403
  44. ALENDRONATE SODIUM. [Suspect]
     Active Substance: ALENDRONATE SODIUM
     Indication: OSTEOPOROSIS PROPHYLAXIS
     Dosage: 35 MG, QW
     Route: 048
     Dates: start: 20140313, end: 20140515
  45. MAGMITT [Concomitant]
     Active Substance: MAGNESIUM OXIDE
     Dosage: 1500 MG, QD
     Route: 048
     Dates: end: 20140324
  46. MUCOSOLVAN L [Concomitant]
     Active Substance: AMBROXOL HYDROCHLORIDE
     Dosage: 90 MG, QD
     Route: 048
     Dates: start: 20140313, end: 20140313
  47. BAKTAR [Concomitant]
     Active Substance: SULFAMETHOXAZOLE\TRIMETHOPRIM
     Dosage: 1 DF, QD
     Route: 048
     Dates: start: 20140320, end: 20140324
  48. GASTER [Concomitant]
     Active Substance: FAMOTIDINE
     Dosage: 40 MG, QD
     Route: 048
     Dates: start: 20140525, end: 20140611
  49. SODIUM CHLORIDE. [Concomitant]
     Active Substance: SODIUM CHLORIDE
     Dosage: 3 DF, QD
     Route: 065
     Dates: start: 20140405, end: 20140407
  50. ALDACTONE A [Concomitant]
     Active Substance: SPIRONOLACTONE
     Dosage: 25 MG, QD
     Route: 048
     Dates: start: 20140528, end: 20140708
  51. FLUITRAN [Concomitant]
     Active Substance: TRICHLORMETHIAZIDE
     Dosage: 2 MG, QD
     Route: 048
     Dates: start: 20140423, end: 20140527
  52. FLUITRAN [Concomitant]
     Active Substance: TRICHLORMETHIAZIDE
     Dosage: 4 MG, QD
     Route: 048
     Dates: start: 20140528, end: 20140603
  53. PRIMPERAN [Concomitant]
     Active Substance: METOCLOPRAMIDE HYDROCHLORIDE
     Dosage: 15 MG, QD
     Route: 048
     Dates: start: 20140513, end: 20140519
  54. NEXIUM [Concomitant]
     Active Substance: ESOMEPRAZOLE MAGNESIUM
     Dosage: 20 MG, QD
     Route: 048
     Dates: start: 20140326, end: 20140329

REACTIONS (3)
  - Osteonecrosis of jaw [Not Recovered/Not Resolved]
  - Sepsis [Fatal]
  - Cellulitis [Fatal]

NARRATIVE: CASE EVENT DATE: 201403
